FAERS Safety Report 6662208-4 (Version None)
Quarter: 2010Q1

REPORT INFORMATION
  Report Type: 
  Country: None (occurrence: None)
  Receive Date: 20100331
  Receipt Date: 20100318
  Transmission Date: 20100710
  Serious: Yes (Hospitalization)
  Sender: FDA-Public Use
  Company Number: JP-PFIZER INC-2010039572

PATIENT
  Age: 50 Year
  Sex: Female

DRUGS (1)
  1. AMLODIPINE BESYLATE [Suspect]
     Dosage: 100 MG, SINGLE

REACTIONS (4)
  - BLOOD PRESSURE SYSTOLIC DECREASED [None]
  - DEPRESSED LEVEL OF CONSCIOUSNESS [None]
  - OVERDOSE [None]
  - VASODILATATION [None]
